FAERS Safety Report 22255718 (Version 1)
Quarter: 2023Q2

REPORT INFORMATION
  Report Type: Spontaneous
  Country: SI (occurrence: SI)
  Receive Date: 20230426
  Receipt Date: 20230426
  Transmission Date: 20230721
  Serious: Yes (Other)
  Sender: FDA-Public Use
  Company Number: SI-BoehringerIngelheim-2023-BI-233605

PATIENT
  Age: 77 Year
  Sex: Male

DRUGS (6)
  1. PRADAXA [Suspect]
     Active Substance: DABIGATRAN ETEXILATE MESYLATE
     Indication: Atrial fibrillation
     Dates: start: 201707
  2. JARDIANCE [Suspect]
     Active Substance: EMPAGLIFLOZIN
     Indication: Product used for unknown indication
     Dates: start: 202303
  3. LOSARTAN POTASSIUM [Concomitant]
     Active Substance: LOSARTAN POTASSIUM
     Indication: Hypertension
     Dosage: IN THE MORNING
     Dates: start: 201008
  4. Tenox [Concomitant]
     Indication: Hypertension
     Dosage: IN THE EVENING
  5. DICLOFENAC [Concomitant]
     Active Substance: DICLOFENAC
     Indication: Spinal osteoarthritis
     Dates: start: 201102
  6. Ketonal [Concomitant]
     Indication: Spinal osteoarthritis
     Dates: start: 201102

REACTIONS (11)
  - COVID-19 [Unknown]
  - Respiratory failure [Unknown]
  - Circulatory collapse [Unknown]
  - Arrhythmia [Unknown]
  - Rales [Unknown]
  - Oedema peripheral [Recovering/Resolving]
  - Arrhythmia [Unknown]
  - Cardiac murmur [Unknown]
  - Oedema peripheral [Unknown]
  - Respiration abnormal [Unknown]
  - Oedema peripheral [Recovering/Resolving]

NARRATIVE: CASE EVENT DATE: 20221001
